FAERS Safety Report 8089730-0 (Version None)
Quarter: 2012Q1

REPORT INFORMATION
  Report Type: 
  Country: None (occurrence: None)
  Receive Date: 20120128
  Receipt Date: 20110629
  Transmission Date: 20120608
  Serious: No
  Sender: FDA-Public Use
  Company Number: US-ABBOTT-11P-163-0836107-00

PATIENT
  Sex: Male
  Weight: 28.4 kg

DRUGS (4)
  1. FOLIC ACID [Concomitant]
     Indication: VITAMIN SUPPLEMENTATION
  2. PREDNISONE TAB [Concomitant]
     Indication: CROHN'S DISEASE
     Dosage: WEANING DOSAGES
  3. HUMIRA [Suspect]
     Indication: CROHN'S DISEASE
     Dosage: 23-NOV-2010
  4. METHOTREXATE [Concomitant]
     Indication: CROHN'S DISEASE

REACTIONS (7)
  - PYREXIA [None]
  - DIARRHOEA [None]
  - RED BLOOD CELL SEDIMENTATION RATE INCREASED [None]
  - ABDOMINAL PAIN [None]
  - VOMITING [None]
  - VIRAL INFECTION [None]
  - HYPERSOMNIA [None]
